FAERS Safety Report 26025796 (Version 1)
Quarter: 2025Q4

REPORT INFORMATION
  Report Type: Spontaneous
  Country: US (occurrence: US)
  Receive Date: 20251111
  Receipt Date: 20251111
  Transmission Date: 20260117
  Serious: No
  Sender: Kenvue
  Company Number: US-KENVUE-20251009393

PATIENT
  Age: 77 Year
  Sex: Female

DRUGS (1)
  1. ZYRTEC [Suspect]
     Active Substance: CETIRIZINE HYDROCHLORIDE
     Indication: Multiple allergies
     Dosage: 1 DOSAGE FORM, ONCE
     Route: 065
     Dates: start: 20251022

REACTIONS (4)
  - Dry throat [Not Recovered/Not Resolved]
  - Dizziness [Not Recovered/Not Resolved]
  - Expired product administered [Unknown]
  - Product administration error [Unknown]

NARRATIVE: CASE EVENT DATE: 20251022
